FAERS Safety Report 5349360-8 (Version None)
Quarter: 2007Q2

REPORT INFORMATION
  Report Type: 
  Country: None (occurrence: None)
  Receive Date: 20070605
  Receipt Date: 20070522
  Transmission Date: 20071010
  Serious: Yes (Other)
  Sender: FDA-Public Use
  Company Number: 2005BI003990

PATIENT
  Age: 35 Year
  Sex: Female
  Weight: 47.6277 kg

DRUGS (4)
  1. NATALIZUMAB [Suspect]
     Indication: MULTIPLE SCLEROSIS
     Dosage: 300 MG; QM; IV
     Route: 042
     Dates: start: 20050214, end: 20050201
  2. AVONEX [Concomitant]
  3. MOTRIN [Concomitant]
  4. ANAPROX [Concomitant]

REACTIONS (4)
  - CELLULITIS [None]
  - DRUG HYPERSENSITIVITY [None]
  - PAIN [None]
  - STAPHYLOCOCCAL INFECTION [None]
